FAERS Safety Report 8609703-6 (Version None)
Quarter: 2012Q3

REPORT INFORMATION
  Report Type: 
  Country: None (occurrence: None)
  Receive Date: 20120821
  Receipt Date: 20120809
  Transmission Date: 20120928
  Serious: Yes (Hospitalization)
  Sender: FDA-Public Use
  Company Number: FR-FRI-1000025993

PATIENT
  Sex: Female

DRUGS (1)
  1. ESCITALOPRAM [Suspect]
     Indication: DEPRESSION
     Dates: start: 20110801, end: 20110806

REACTIONS (4)
  - RASH [None]
  - MALAISE [None]
  - HYPOTENSION [None]
  - PRURITUS [None]
